FAERS Safety Report 5978728-1 (Version None)
Quarter: 2008Q4

REPORT INFORMATION
  Report Type: 
  Country: None (occurrence: None)
  Receive Date: 20081204
  Receipt Date: 20081125
  Transmission Date: 20090506
  Serious: Yes (Hospitalization)
  Sender: FDA-Public Use
  Company Number: US-AVENTIS-200818029US

PATIENT
  Sex: Female

DRUGS (5)
  1. LANTUS [Suspect]
     Dates: start: 20000101
  2. LIPITOR [Concomitant]
     Dosage: DOSE: UNK
  3. COZAAR [Concomitant]
     Dosage: DOSE: UNK
  4. MAVIK [Concomitant]
     Dosage: DOSE: UNK
  5. ACTONEL [Concomitant]
     Dosage: DOSE: UNK

REACTIONS (3)
  - BLOOD GLUCOSE DECREASED [None]
  - FALL [None]
  - UPPER LIMB FRACTURE [None]
